FAERS Safety Report 24421600 (Version 3)
Quarter: 2025Q3

REPORT INFORMATION
  Report Type: Spontaneous
  Country: US (occurrence: US)
  Receive Date: 20241010
  Receipt Date: 20250902
  Transmission Date: 20251020
  Serious: No
  Sender: Unknown Manufacturer
  Company Number: US-862174955-ML2024-05097

PATIENT
  Age: 72 Year
  Sex: Male
  Weight: 99 kg

DRUGS (1)
  1. DORZOLAMIDE HYDROCHLORIDE OPHTHALMIC SOLUTION [Suspect]
     Active Substance: DORZOLAMIDE HYDROCHLORIDE
     Indication: Glaucoma
     Dosage: DOSE: ONE DROP IN EACH EYE TWICE A DAY (ONCE IN THE MORNING AND EVENING).
     Route: 047
     Dates: start: 20240906, end: 20240918

REACTIONS (3)
  - Product dose omission issue [Unknown]
  - No adverse event [Unknown]
  - Product packaging quantity issue [Unknown]

NARRATIVE: CASE EVENT DATE: 20240901
